FAERS Safety Report 10037184 (Version 3)
Quarter: 2014Q2

REPORT INFORMATION
  Report Type: Spontaneous
  Country: SE (occurrence: None)
  Receive Date: 20140324
  Receipt Date: 20140529
  Transmission Date: 20141212
  Serious: Yes (Death, Hospitalization)
  Sender: FDA-Public Use
  Company Number: 2014SE010372

PATIENT
  Age: 33 Year
  Sex: Female
  Weight: 60 kg

DRUGS (4)
  1. ALOXI [Suspect]
     Indication: PROPHYLAXIS OF NAUSEA AND VOMITING
     Route: 042
     Dates: start: 20140217, end: 20140217
  2. YONDELIS [Suspect]
     Indication: SYNOVIAL SARCOMA METASTATIC
     Route: 042
     Dates: start: 20140127, end: 20140127
  3. EMEND (APREPITANT) [Suspect]
     Indication: PROPHYLAXIS OF NAUSEA AND VOMITING
     Dates: start: 20140217, end: 20140217
  4. BETAPRED (BETAMETHASONE SODIUM PHOSPHATE) [Concomitant]

REACTIONS (12)
  - Renal failure [None]
  - Bone marrow failure [None]
  - Toxicity to various agents [None]
  - Hepatic failure [None]
  - Drug ineffective [None]
  - Nausea [None]
  - Vomiting [None]
  - Dehydration [None]
  - Hepatotoxicity [None]
  - Drug interaction [None]
  - Wound infection staphylococcal [None]
  - Drug administration error [None]
